FAERS Safety Report 10528294 (Version 1)
Quarter: 2014Q4

REPORT INFORMATION
  Report Type: Spontaneous
  Country: HR (occurrence: None)
  Receive Date: 20141015
  Receipt Date: 20141015
  Transmission Date: 20150528
  Serious: Yes (Hospitalization)
  Sender: FDA-Public Use
  Company Number: 2014-HR-013163

PATIENT
  Age: 57 Year
  Sex: Male

DRUGS (4)
  1. FLUPHENAZINE HCL (FLUPHENAZINE HYDROCHLORIDE) [Concomitant]
  2. BIPERIDEN (BIPERIDEN HYDROCHLORIDE) [Concomitant]
  3. CLOZAPINE (CLOZAPINE) TABLET [Suspect]
     Active Substance: CLOZAPINE
     Indication: SCHIZOPHRENIA
     Route: 048
     Dates: start: 2010, end: 2011
  4. LEVOMEPROMAZINE (LEVOMEPROMAZINE MALEATE) [Concomitant]

REACTIONS (12)
  - Pancytopenia [None]
  - Drug resistance [None]
  - Hallucination, visual [None]
  - Pallor [None]
  - Disorientation [None]
  - Stupor [None]
  - Cognitive disorder [None]
  - Dehydration [None]
  - Catatonia [None]
  - Delusion [None]
  - Abnormal behaviour [None]
  - Hallucination, auditory [None]

NARRATIVE: CASE EVENT DATE: 201108
